FAERS Safety Report 14957903 (Version 1)
Quarter: 2018Q2

REPORT INFORMATION
  Report Type: Report from Study
  Country: US (occurrence: US)
  Receive Date: 20180531
  Receipt Date: 20180531
  Transmission Date: 20180711
  Serious: No
  Sender: FDA-Public Use
  Company Number: PHEH2018US021007

PATIENT

DRUGS (1)
  1. ILARIS [Suspect]
     Active Substance: CANAKINUMAB
     Indication: STILL^S DISEASE
     Dosage: 140 MG, (FOR EVERY 42 DAYS)
     Route: 058

REACTIONS (2)
  - Arthralgia [Unknown]
  - Tonsillitis [Recovered/Resolved]
